FAERS Safety Report 8515689-5 (Version None)
Quarter: 2012Q3

REPORT INFORMATION
  Report Type: 
  Country: None (occurrence: None)
  Receive Date: 20120717
  Receipt Date: 20120713
  Transmission Date: 20120928
  Serious: Yes (Other)
  Sender: FDA-Public Use
  Company Number: PHHY2012CA060124

PATIENT
  Sex: Male

DRUGS (5)
  1. FLOVENT [Concomitant]
  2. CLOZARIL [Suspect]
     Dosage: 800 MG, UNK
     Route: 048
  3. CLOZARIL [Suspect]
     Indication: SCHIZOPHRENIA
     Dosage: 450 MG, UNK
     Route: 048
     Dates: start: 20120323
  4. SINGULAIR [Concomitant]
  5. CRESTOR [Concomitant]

REACTIONS (2)
  - INCORRECT DOSE ADMINISTERED [None]
  - BODY TEMPERATURE INCREASED [None]
